FAERS Safety Report 19459229 (Version 1)
Quarter: 2021Q2

REPORT INFORMATION
  Report Type: Report from Study
  Country: RO (occurrence: RO)
  Receive Date: 20210624
  Receipt Date: 20210624
  Transmission Date: 20210717
  Serious: Yes (Other)
  Sender: FDA-Public Use
  Company Number: RO-GILEAD-2021-0537362

PATIENT
  Age: 32 Year
  Sex: Female

DRUGS (1)
  1. EMTRICITABINE [Suspect]
     Active Substance: EMTRICITABINE
     Indication: HIV INFECTION
     Dosage: 200 MG
     Route: 065

REACTIONS (1)
  - Hepatitis B [Unknown]
